FAERS Safety Report 10151283 (Version 1)
Quarter: 2014Q2

REPORT INFORMATION
  Report Type: Spontaneous
  Country: US (occurrence: US)
  Receive Date: 20140502
  Receipt Date: 20140502
  Transmission Date: 20141212
  Serious: No
  Sender: FDA-Public Use
  Company Number: US-ASTRAZENECA-2013SE79693

PATIENT
  Age: 62 Year
  Sex: Male

DRUGS (3)
  1. PRILOSEC OTC [Suspect]
     Route: 048
     Dates: start: 2003
  2. PRILOSEC OTC [Suspect]
     Route: 048
  3. LIPITOR [Concomitant]

REACTIONS (1)
  - Osteoporosis [Unknown]
